FAERS Safety Report 10896977 (Version 1)
Quarter: 2015Q1

REPORT INFORMATION
  Report Type: Spontaneous
  Country: FR (occurrence: FR)
  Receive Date: 20150309
  Receipt Date: 20150309
  Transmission Date: 20150721
  Serious: Yes (Hospitalization)
  Sender: FDA-Public Use
  Company Number: FR-TEVA-546207ISR

PATIENT
  Age: 80 Year
  Sex: Female

DRUGS (3)
  1. AMOXICILLIN, CLAVULANIC ACID [Concomitant]
     Active Substance: AMOXICILLIN\CLAVULANIC ACID
     Route: 065
  2. NAPROXEN. [Suspect]
     Active Substance: NAPROXEN
     Indication: ARTHRALGIA
     Dosage: 750 MILLIGRAM DAILY;
     Route: 065
  3. BILASTINE [Concomitant]
     Active Substance: BILASTINE
     Route: 065

REACTIONS (1)
  - Pulmonary eosinophilia [Recovered/Resolved]
